FAERS Safety Report 10455439 (Version 1)
Quarter: 2014Q3

REPORT INFORMATION
  Report Type: Spontaneous
  Country: US (occurrence: None)
  Receive Date: 20140915
  Receipt Date: 20140915
  Transmission Date: 20150326
  Serious: Yes (Death)
  Sender: FDA-Public Use
  Company Number: None

PATIENT
  Age: 47 Year
  Sex: Female

DRUGS (5)
  1. SILDONAFIL [Concomitant]
  2. OMPERAZOLE [Concomitant]
     Active Substance: OMEPRAZOLE
  3. LETARIS [Suspect]
     Active Substance: AMBRISENTAN
     Indication: PULMONARY HYPERTENSION
     Route: 048
     Dates: start: 20130329, end: 20140814
  4. FUROSEMIDE. [Concomitant]
     Active Substance: FUROSEMIDE
  5. FERROUS SULFATE [Concomitant]
     Active Substance: FERROUS SULFATE\FERROUS SULFATE, DRIED

REACTIONS (1)
  - Accident [None]

NARRATIVE: CASE EVENT DATE: 20140814
